FAERS Safety Report 6839541-6 (Version None)
Quarter: 2010Q3

REPORT INFORMATION
  Report Type: 
  Country: None (occurrence: None)
  Receive Date: 20100714
  Receipt Date: 20100108
  Transmission Date: 20110219
  Serious: No
  Sender: FDA-Public Use
  Company Number: A0838502A

PATIENT
  Age: 77 Year
  Sex: Female

DRUGS (4)
  1. FLOVENT [Suspect]
     Indication: ASTHMA
     Dosage: 1PUFF TWICE PER DAY
     Route: 055
     Dates: start: 20060101
  2. ASPIRIN [Concomitant]
  3. ROBITUSSIN EXPECTORANT [Concomitant]
  4. LUMIGAN [Concomitant]

REACTIONS (1)
  - OROPHARYNGEAL PAIN [None]
